FAERS Safety Report 4883511-4 (Version None)
Quarter: 2006Q1

REPORT INFORMATION
  Report Type: 
  Country: None (occurrence: None)
  Receive Date: 20060118
  Receipt Date: 20051005
  Transmission Date: 20060701
  Serious: Yes (Hospitalization, Disabling)
  Sender: FDA-Public Use
  Company Number: US-MERCK-0510USA03472

PATIENT
  Age: 32 Year
  Sex: Female
  Weight: 61 kg

DRUGS (2)
  1. VIOXX [Suspect]
     Indication: SHOULDER PAIN
     Route: 048
     Dates: start: 20001001, end: 20001201
  2. ATENOLOL [Concomitant]
     Route: 065

REACTIONS (3)
  - MASS [None]
  - MYOCARDIAL INFARCTION [None]
  - VENTRICULAR TACHYCARDIA [None]
